FAERS Safety Report 16024013 (Version 1)
Quarter: 2019Q1

REPORT INFORMATION
  Report Type: Other
  Country: US (occurrence: US)
  Receive Date: 20190301
  Receipt Date: 20190301
  Transmission Date: 20190418
  Serious: Yes (Death)
  Sender: FDA-Public Use
  Company Number: US-INTELLIPHARMACEUTICS CORP.-2063404

PATIENT
  Age: 27 Year
  Sex: Male

DRUGS (1)
  1. QUETIAPINE FUMARATE. [Suspect]
     Active Substance: QUETIAPINE FUMARATE
     Indication: PRODUCT USED FOR UNKNOWN INDICATION
     Route: 065

REACTIONS (4)
  - Herbal interaction [Fatal]
  - Toxicity to various agents [Fatal]
  - Seizure [None]
  - Hyperthermia [None]
